FAERS Safety Report 9041520 (Version 1)
Quarter: 2013Q1

REPORT INFORMATION
  Report Type: Report from Study
  Country: US (occurrence: US)
  Receive Date: 20130129
  Receipt Date: 20130129
  Transmission Date: 20140127
  Serious: No
  Sender: FDA-Public Use
  Company Number: US-ABBOTT-12P-163-0888560-00

PATIENT
  Age: 63 Year
  Sex: Female

DRUGS (9)
  1. HUMIRA 40 MG/0.8 ML PEN [Suspect]
     Indication: CROHN^S DISEASE
     Dates: start: 20110929
  2. PENTASA [Concomitant]
     Indication: CROHN^S DISEASE
  3. ENTOCORT [Concomitant]
     Indication: CROHN^S DISEASE
  4. INDERAL [Concomitant]
     Indication: HEART RATE IRREGULAR
  5. ZOLOFT [Concomitant]
     Indication: DEPRESSION
  6. AMBIEN [Concomitant]
     Indication: INSOMNIA
     Dosage: AT BEDTIME AS NEEDED
  7. CALCIUM [Concomitant]
     Indication: PRODUCT USED FOR UNKNOWN INDICATION
  8. VITAMIN B OTC [Concomitant]
     Indication: VITAMIN SUPPLEMENTATION
  9. ASA [Concomitant]
     Indication: PROPHYLAXIS

REACTIONS (8)
  - Influenza like illness [Recovering/Resolving]
  - Injection site rash [Not Recovered/Not Resolved]
  - Injection site bruising [Not Recovered/Not Resolved]
  - Injection site pruritus [Not Recovered/Not Resolved]
  - Injection site erythema [Unknown]
  - Injection site irritation [Not Recovered/Not Resolved]
  - Sinus congestion [Recovering/Resolving]
  - Injection site reaction [Unknown]
